FAERS Safety Report 8063494-9 (Version None)
Quarter: 2012Q1

REPORT INFORMATION
  Report Type: 
  Country: None (occurrence: None)
  Receive Date: 20120123
  Receipt Date: 20120117
  Transmission Date: 20120608
  Serious: Yes (Hospitalization, Other)
  Sender: FDA-Public Use
  Company Number: PHHY2011JP86915

PATIENT
  Sex: Male
  Weight: 52 kg

DRUGS (7)
  1. LOXONIN [Concomitant]
     Dosage: 180 MG, UNK
     Route: 048
  2. MAGMITT [Concomitant]
     Dosage: 1320 MG, UNK
     Route: 048
  3. LASIX [Concomitant]
     Dosage: 20 MG, UNK
     Route: 048
  4. COMBINED ANDROGEN BLOCKADE [Concomitant]
  5. ZOMETA [Suspect]
     Indication: METASTASES TO BONE
     Dosage: 4 MG, EVERY 4 WEEKS
     Route: 041
     Dates: start: 20110128
  6. GASMOTIN [Concomitant]
     Dosage: 15 MG, UNK
     Route: 048
  7. ALDACTONE [Concomitant]
     Dosage: 25 MG, UNK
     Route: 048

REACTIONS (4)
  - TIBIA FRACTURE [None]
  - FEMORAL NECK FRACTURE [None]
  - FEMUR FRACTURE [None]
  - ARTHRALGIA [None]
